FAERS Safety Report 4509382-3 (Version None)
Quarter: 2004Q4

REPORT INFORMATION
  Report Type: 
  Country: None (occurrence: None)
  Receive Date: 20041025
  Receipt Date: 20040625
  Transmission Date: 20050328
  Serious: Yes (Hospitalization)
  Sender: FDA-Public Use
  Company Number: US-JNJFOC-20040607896

PATIENT
  Age: 78 Year
  Sex: Female

DRUGS (13)
  1. INFLIXIMAB (INFLIXIMAB, RECOMBINANT) LYOPHILIZED POWDER [Suspect]
     Indication: RHEUMATOID ARTHRITIS
     Dosage: INTRAVENOUS
     Route: 042
     Dates: start: 20001221
  2. BEXTRA [Concomitant]
  3. NEXIUM [Concomitant]
  4. PAXIL [Concomitant]
  5. MIACALCIN [Concomitant]
  6. FOLIC ACID [Concomitant]
  7. METHOTREXATE [Concomitant]
  8. ASPIRIN [Concomitant]
  9. DILTIAZEM [Concomitant]
  10. ACCUPRIL [Concomitant]
  11. CALCIUM (CALCIUM) [Concomitant]
  12. FUROSEMIDE [Concomitant]
  13. IBUPROFEN [Concomitant]

REACTIONS (1)
  - PNEUMONIA [None]
